FAERS Safety Report 11174689 (Version 2)
Quarter: 2015Q3

REPORT INFORMATION
  Report Type: Spontaneous
  Country: BR (occurrence: BR)
  Receive Date: 20150609
  Receipt Date: 20150710
  Transmission Date: 20151125
  Serious: Yes (Hospitalization, Other)
  Sender: FDA-Public Use
  Company Number: BR-ASTRAZENECA-2015SE54273

PATIENT
  Age: 628 Month
  Sex: Female
  Weight: 92 kg

DRUGS (8)
  1. NOLVADEX [Suspect]
     Active Substance: TAMOXIFEN CITRATE
     Indication: BREAST CANCER
     Route: 048
     Dates: start: 2007, end: 2012
  2. FUROSEMIDE. [Concomitant]
     Active Substance: FUROSEMIDE
     Indication: HYPERTENSION
     Dosage: DAILY
     Route: 048
     Dates: start: 2005
  3. SELOZOK [Suspect]
     Active Substance: METOPROLOL SUCCINATE
     Indication: HYPERTENSION
     Dosage: ONE MORE TABLET
     Route: 048
  4. CHEMOTHERAPY [Concomitant]
     Active Substance: UNSPECIFIED INGREDIENT
     Indication: BREAST CANCER
     Route: 065
  5. AMATO [Concomitant]
     Active Substance: TOPIRAMATE
     Indication: THYROID DISORDER
     Route: 048
  6. SELOZOK [Suspect]
     Active Substance: METOPROLOL SUCCINATE
     Indication: HYPERTENSION
     Route: 048
     Dates: start: 2005
  7. APRAZ [Concomitant]
     Indication: PANIC DISORDER
     Route: 048
     Dates: start: 2013, end: 2015
  8. RADIOTHERAPY [Concomitant]
     Active Substance: RADIATION THERAPY
     Indication: BREAST CANCER
     Route: 065

REACTIONS (6)
  - Weight increased [Recovered/Resolved]
  - Panic disorder [Recovered/Resolved]
  - Breast cancer [Recovered/Resolved]
  - Hypertension [Unknown]
  - Glucose tolerance impaired [Unknown]
  - Drug ineffective [Unknown]

NARRATIVE: CASE EVENT DATE: 200708
